FAERS Safety Report 18807298 (Version 1)
Quarter: 2021Q1

REPORT INFORMATION
  Report Type: Spontaneous
  Country: US (occurrence: US)
  Receive Date: 20210128
  Receipt Date: 20210128
  Transmission Date: 20210419
  Serious: Yes (Hospitalization)
  Sender: FDA-Public Use
  Company Number: None

PATIENT
  Age: 3 Year
  Sex: Female

DRUGS (1)
  1. NEULASTA [Suspect]
     Active Substance: PEGFILGRASTIM
     Indication: CHEMOTHERAPY
     Route: 058
     Dates: start: 20141113

REACTIONS (2)
  - Laboratory test abnormal [None]
  - Product supply issue [None]

NARRATIVE: CASE EVENT DATE: 20210127
